FAERS Safety Report 5777108-1 (Version None)
Quarter: 2008Q2

REPORT INFORMATION
  Report Type: 
  Country: None (occurrence: None)
  Receive Date: 20080616
  Receipt Date: 20080603
  Transmission Date: 20081010
  Serious: Yes (Hospitalization, Other)
  Sender: FDA-Public Use
  Company Number: JP-1164465

PATIENT
  Age: 86 Year
  Sex: Female

DRUGS (4)
  1. BSS PLUS [Suspect]
     Indication: CATARACT OPERATION
     Dosage: 200 ML
     Route: 031
     Dates: start: 20070718, end: 20070718
  2. VISCOAT [Suspect]
     Indication: CATARACT OPERATION
     Route: 031
     Dates: start: 20070718, end: 20070718
  3. OPEGAN HI   (HYALURONATE SODIUM) [Concomitant]
  4. MASKIN (CHLORHEXIDINE GLUCONATE) [Concomitant]

REACTIONS (5)
  - CORNEAL DEGENERATION [None]
  - CORNEAL OEDEMA [None]
  - CORNEAL OPACITY [None]
  - CORNEAL TRANSPLANT [None]
  - VISUAL ACUITY REDUCED [None]
